FAERS Safety Report 5046122-6 (Version None)
Quarter: 2006Q2

REPORT INFORMATION
  Report Type: 
  Country: None (occurrence: None)
  Receive Date: 20060629
  Receipt Date: 20060613
  Transmission Date: 20061013
  Serious: Yes (Other)
  Sender: FDA-Public Use
  Company Number: 2006US001254

PATIENT
  Age: 49 Year
  Sex: Male

DRUGS (3)
  1. PROTOPIC [Suspect]
     Indication: VITILIGO
     Dosage: UID/QD, TOPICAL
     Route: 061
     Dates: start: 20041101, end: 20050201
  2. LEVOXYL [Concomitant]
  3. MULTIVITAMINS (ERGOCALCIFEROL, FOLIC ACID, NICOTINAMIDE, PANTHENOL, TH [Concomitant]

REACTIONS (2)
  - BLADDER CANCER [None]
  - SQUAMOUS CELL CARCINOMA OF SKIN [None]
